FAERS Safety Report 19810001 (Version 1)
Quarter: 2021Q3

REPORT INFORMATION
  Report Type: Spontaneous
  Country: US (occurrence: US)
  Receive Date: 20210909
  Receipt Date: 20210909
  Transmission Date: 20211014
  Serious: No
  Sender: FDA-Public Use
  Company Number: None

PATIENT
  Age: 67 Year
  Sex: Female
  Weight: 76.5 kg

DRUGS (2)
  1. COLLAGENASE SANTYL [Suspect]
     Active Substance: COLLAGENASE CLOSTRIDIUM HISTOLYTICUM
     Indication: BACTERIAL INFECTION
     Dosage: ?          QUANTITY:1 APPLICATION;?
     Route: 061
  2. LINEZOLID TABLETS [Suspect]
     Active Substance: LINEZOLID
     Indication: BACTERIAL INFECTION
     Dosage: ?          QUANTITY:1 TABLET(S);?
     Route: 048

REACTIONS (7)
  - Asthenia [None]
  - Dyspnoea [None]
  - Fall [None]
  - Feeling of body temperature change [None]
  - Diarrhoea [None]
  - International normalised ratio increased [None]
  - Disorientation [None]

NARRATIVE: CASE EVENT DATE: 20210904
